FAERS Safety Report 24966489 (Version 1)
Quarter: 2025Q1

REPORT INFORMATION
  Report Type: Spontaneous
  Country: FR (occurrence: FR)
  Receive Date: 20250213
  Receipt Date: 20250213
  Transmission Date: 20250409
  Serious: Yes (Hospitalization)
  Sender: FRESENIUS KABI
  Company Number: FR-ROCHE-10000196169

PATIENT
  Age: 81 Year
  Sex: Female
  Weight: 58 kg

DRUGS (14)
  1. OXALIPLATIN [Suspect]
     Active Substance: OXALIPLATIN
     Indication: Diffuse large B-cell lymphoma refractory
     Dosage: C1-4, D1 + D15?FOA-INFUSION
     Route: 042
     Dates: start: 20241219
  2. GEMCITABINE [Suspect]
     Active Substance: GEMCITABINE
     Indication: Diffuse large B-cell lymphoma refractory
     Dosage: C1-4, D1 + D15?FOA-INFUSION
     Route: 042
     Dates: start: 20241219
  3. RITUXIMAB [Suspect]
     Active Substance: RITUXIMAB
     Indication: Diffuse large B-cell lymphoma refractory
     Dosage: C1-4, D1 + D15?FOA-INFUSION
     Route: 042
     Dates: start: 20241219
  4. PANTOPRAZOLE SODIUM [Concomitant]
     Active Substance: PANTOPRAZOLE SODIUM
     Indication: Prophylaxis
  5. Quetapin (Quetiapine fumarate) [Concomitant]
     Indication: Depression
  6. VALPROMIDE [Concomitant]
     Active Substance: VALPROMIDE
     Indication: Depression
  7. VENLAFAXINE [Concomitant]
     Active Substance: VENLAFAXINE HYDROCHLORIDE
     Indication: Depression
  8. Macrogol [MACROGOL] [Concomitant]
     Indication: Constipation
     Dosage: 2 DOSAGE FORM BAGS
  9. Levothyroxine [LEVOTHYROXINE] [Concomitant]
     Indication: Thyroidectomy
  10. OXYCODONE [Concomitant]
     Active Substance: OXYCODONE
     Indication: Pain
  11. Gabapentine [GABAPENTIN] [Concomitant]
     Indication: Pain
  12. Thiocolchicoside [THIOCOLCHICOSIDE] [Concomitant]
     Indication: Pain
  13. Zymad [COLECALCIFEROL] [Concomitant]
     Indication: Product used for unknown indication
  14. Seresta [OXAZEPAM] [Concomitant]
     Indication: Depression

REACTIONS (1)
  - Lung disorder [Not Recovered/Not Resolved]

NARRATIVE: CASE EVENT DATE: 20250112
